FAERS Safety Report 17014582 (Version 1)
Quarter: 2019Q4

REPORT INFORMATION
  Report Type: Spontaneous
  Country: FR (occurrence: FR)
  Receive Date: 20191111
  Receipt Date: 20191111
  Transmission Date: 20200122
  Serious: Yes (Other)
  Sender: FDA-Public Use
  Company Number: FR-TEVA-2019-FR-1135809

PATIENT
  Age: 18 Year
  Sex: Male

DRUGS (4)
  1. XANAX [Suspect]
     Active Substance: ALPRAZOLAM
     Dosage: 2 TABLETS A DAY
     Route: 048
     Dates: start: 201908
  2. CHLORHYDRATE DE TRAMADOL [Suspect]
     Active Substance: TRAMADOL HYDROCHLORIDE
     Dosage: 1 TABLET 2 TIMES A WEEK
     Route: 048
     Dates: start: 20190927
  3. PHENERGAN [Suspect]
     Active Substance: PROMETHAZINE HYDROCHLORIDE
     Dosage: 2 TABLETS 3 TIMES A DAY ASSOCIATED WITH EUPHON
     Route: 048
     Dates: start: 201908
  4. EUPHON, SIROP [Suspect]
     Active Substance: CODEINE\SISYMBRIUM OFFICINALE WHOLE
     Dosage: 3 GLASSES / DAY (1 BOTTLE OF EUPHON + 2 CP OF PHENERGAN + SPRITE QSP 1L)
     Route: 048
     Dates: start: 201908

REACTIONS (2)
  - Drug abuse [Not Recovered/Not Resolved]
  - Drug dependence [Not Recovered/Not Resolved]

NARRATIVE: CASE EVENT DATE: 201908
